FAERS Safety Report 8945155 (Version 2)
Quarter: 2013Q2

REPORT INFORMATION
  Report Type: Spontaneous
  Country: US (occurrence: US)
  Receive Date: 20121204
  Receipt Date: 20130404
  Transmission Date: 20140414
  Serious: No
  Sender: FDA-Public Use
  Company Number: US-AMGEN-USASP2012065253

PATIENT
  Age: 52 Year
  Sex: Female
  Weight: 108.84 kg

DRUGS (10)
  1. ENBREL [Suspect]
     Indication: RHEUMATOID ARTHRITIS
     Dosage: 50 MG, QWK
     Route: 058
     Dates: start: 200908
  2. LISINOPRIL [Concomitant]
     Indication: HYPERTENSION
     Dosage: 20 G, UNK
     Route: 048
  3. ADVIL                              /00109201/ [Concomitant]
     Indication: PAIN
     Dosage: UNK
     Route: 048
  4. ADVIL                              /00109201/ [Concomitant]
     Indication: OSTEOARTHRITIS
  5. AGGRENOX [Concomitant]
     Dosage: UNK,25-200MG
  6. QUINAPRIL [Concomitant]
     Dosage: 25 MG, UNK
  7. FOLIC ACID [Concomitant]
     Dosage: UNK
  8. CALCIUM +D                         /07511201/ [Concomitant]
     Dosage: UNK
  9. LIPITOR [Concomitant]
     Dosage: 10 MG, UNK
  10. METOPROLOL [Concomitant]
     Dosage: 25 MG, UNK

REACTIONS (2)
  - Headache [Unknown]
  - White blood cell count decreased [Unknown]
